FAERS Safety Report 6091305-X (Version None)
Quarter: 2009Q1

REPORT INFORMATION
  Report Type: 
  Country: None (occurrence: None)
  Receive Date: 20090220
  Receipt Date: 20090220
  Transmission Date: 20090719
  Serious: Yes (Life-Threatening, Hospitalization)
  Sender: FDA-Public Use
  Company Number: None

PATIENT
  Age: 67 Year
  Sex: Male
  Weight: 99.7913 kg

DRUGS (2)
  1. SIMVASTATIN [Suspect]
     Indication: BLOOD CHOLESTEROL INCREASED
     Dosage: 40MG 1 DAILY WAS ON IT FOR 4-5 WEEKS
     Dates: start: 20081101, end: 20090125
  2. METHOTREXATE [Suspect]
     Indication: RHEUMATOID ARTHRITIS
     Dosage: 2.5 MG TABLETS WEEKLY FOR 15 YEARS
     Dates: start: 20081101, end: 20090125

REACTIONS (11)
  - BLOOD COUNT ABNORMAL [None]
  - CONDITION AGGRAVATED [None]
  - DIALYSIS [None]
  - HYPOTENSION [None]
  - INCOHERENT [None]
  - MALAISE [None]
  - MEMORY IMPAIRMENT [None]
  - ORAL INFECTION [None]
  - PULMONARY FUNCTION TEST ABNORMAL [None]
  - RENAL IMPAIRMENT [None]
  - STOMATITIS [None]
